FAERS Safety Report 18246977 (Version 3)
Quarter: 2025Q2

REPORT INFORMATION
  Report Type: Spontaneous
  Country: IT (occurrence: IT)
  Receive Date: 20200909
  Receipt Date: 20250507
  Transmission Date: 20250717
  Serious: Yes (Other)
  Sender: ACCORD
  Company Number: None

PATIENT
  Age: 10 Year
  Sex: Female
  Weight: 23 kg

DRUGS (22)
  1. ARIPIPRAZOLE [Suspect]
     Active Substance: ARIPIPRAZOLE
     Indication: Sleep disorder
     Dosage: .3 MG/KG DAILY
     Route: 065
  2. TRAZODONE HYDROCHLORIDE [Suspect]
     Active Substance: TRAZODONE HYDROCHLORIDE
     Indication: Sleep disorder
     Dosage: 1 MG/KG DAILY
     Route: 065
  3. ACETAMINOPHEN [Suspect]
     Active Substance: ACETAMINOPHEN
     Indication: Pain
     Route: 065
  4. CETIRIZINE [Suspect]
     Active Substance: CETIRIZINE HYDROCHLORIDE
     Indication: Pruritus
     Dosage: 1 MG/KG DAILY
     Route: 065
  5. DEXMEDETOMIDINE HYDROCHLORIDE [Suspect]
     Active Substance: DEXMEDETOMIDINE HYDROCHLORIDE
     Indication: Sleep disorder
     Dosage: AT A DOSE OF 3MICROG/KG/DAY (0.7 ML OF THE IV FORMULATION AT THECONCENTRATION OF 100 MICROG/ML),...
  6. IBUPROFEN [Suspect]
     Active Substance: IBUPROFEN
     Indication: Pain
     Route: 065
  7. ALPRAZOLAM [Suspect]
     Active Substance: ALPRAZOLAM
     Indication: Sleep disorder
     Dosage: .01 MG/KG DAILY
     Route: 065
  8. MELATONIN [Suspect]
     Active Substance: MELATONIN
     Indication: Sleep disorder
     Dosage: 0.05 MG/KG (PER DAY)
     Route: 065
  9. DIAZEPAM [Suspect]
     Active Substance: DIAZEPAM
     Indication: Sleep disorder
     Dosage: .1 MG/KG DAILY
     Route: 065
  10. NIAPRAZINE [Suspect]
     Active Substance: NIAPRAZINE
     Indication: Sleep disorder
     Dosage: 1 MG/KG, QD
     Route: 065
  11. CHLORPHENIRAMINE MALEATE [Suspect]
     Active Substance: CHLORPHENIRAMINE MALEATE
     Indication: Pruritus
  12. GABAPENTIN [Suspect]
     Active Substance: GABAPENTIN
     Indication: Pain
     Dosage: 25 MG/KG DAILY
     Route: 065
  13. METAMIZOL [Suspect]
     Active Substance: METAMIZOLE SODIUM
     Indication: Pain
     Dosage: 20 MG/KG (PER DAY)
     Route: 065
  14. TRAMADOL [Suspect]
     Active Substance: TRAMADOL
     Indication: Pain
     Dosage: 6 MG/KG DAILY
     Route: 065
  15. ACETAMINOPHEN [Suspect]
     Active Substance: ACETAMINOPHEN
     Indication: Pain
  16. PROPOFOL [Concomitant]
     Active Substance: PROPOFOL
     Indication: Sedation
     Dosage: (MAXIMUM DOSE REQUIRED 5 MG/KG/DAY) 3 TIMES
     Route: 065
  17. KETAMINE [Concomitant]
     Active Substance: KETAMINE
     Indication: Sedation
     Dosage: (MAXIMUM DOSE REQUIRED 3.5 MG/KG/DAY)
     Route: 065
  18. CHLORPHENIRAMINE MALEATE [Concomitant]
     Active Substance: CHLORPHENIRAMINE MALEATE
     Indication: Pruritus
     Dosage: .2 MG/KG DAILY;
     Route: 065
  19. ALPRAZOLAM [Suspect]
     Active Substance: ALPRAZOLAM
     Indication: Depression
     Route: 065
  20. ALPRAZOLAM [Suspect]
     Active Substance: ALPRAZOLAM
     Indication: Depression
     Dosage: .01 MG/KG DAILY
     Route: 065
  21. ARIPIPRAZOLE [Suspect]
     Active Substance: ARIPIPRAZOLE
     Indication: Depression
  22. TRAMADOL [Suspect]
     Active Substance: TRAMADOL
     Indication: Pain
     Dosage: 5 MILLIGRAM/KILOGRAM, DAILY
     Route: 065

REACTIONS (8)
  - Quality of life decreased [Unknown]
  - Fatigue [Unknown]
  - Agitation [Unknown]
  - Drug ineffective [Unknown]
  - Paradoxical drug reaction [Unknown]
  - Sleep disorder [Unknown]
  - Irritability [Unknown]
  - Confusional arousal [Unknown]
